FAERS Safety Report 6889843-2 (Version None)
Quarter: 2010Q3

REPORT INFORMATION
  Report Type: 
  Country: None (occurrence: None)
  Receive Date: 20100730
  Receipt Date: 20080524
  Transmission Date: 20110219
  Serious: No
  Sender: FDA-Public Use
  Company Number: US-PFIZER INC-2008029275

PATIENT
  Sex: Female
  Weight: 88.45 kg

DRUGS (2)
  1. LIPITOR [Suspect]
  2. ZETIA [Concomitant]

REACTIONS (2)
  - LOW DENSITY LIPOPROTEIN INCREASED [None]
  - WRONG TECHNIQUE IN DRUG USAGE PROCESS [None]
